FAERS Safety Report 8130155-7 (Version None)
Quarter: 2012Q1

REPORT INFORMATION
  Report Type: 
  Country: None (occurrence: None)
  Receive Date: 20120210
  Receipt Date: 20120202
  Transmission Date: 20120608
  Serious: Yes (Hospitalization)
  Sender: FDA-Public Use
  Company Number: ES-CELGENEUS-144-21660-12020261

PATIENT
  Sex: Male
  Weight: 60.6 kg

DRUGS (5)
  1. LOSARTAN POTASSIUM [Concomitant]
     Route: 048
  2. ATORVASTATIN CALCIUM [Concomitant]
     Route: 048
  3. ABRAXANE [Suspect]
     Route: 041
     Dates: start: 20111216, end: 20120127
  4. ATENOLOL [Concomitant]
     Route: 048
  5. MOXON [Concomitant]
     Route: 048

REACTIONS (2)
  - SYNCOPE [None]
  - ATRIAL TACHYCARDIA [None]
